FAERS Safety Report 4338864-2 (Version None)
Quarter: 2004Q2

REPORT INFORMATION
  Report Type: 
  Country: None (occurrence: None)
  Receive Date: 20040409
  Receipt Date: 20040324
  Transmission Date: 20050107
  Serious: Yes (Death, Life-Threatening)
  Sender: FDA-Public Use
  Company Number: 2004-01209

PATIENT
  Age: 68 Year
  Sex: Female
  Weight: 55 kg

DRUGS (6)
  1. DAUNOXOME [Suspect]
     Indication: MYELOID LEUKAEMIA
     Dosage: 70 MG, ONCE A DAY, INTRAVENOUS
     Route: 042
     Dates: start: 20031210, end: 20031213
  2. CYTARABINE [Suspect]
     Indication: MYELOID LEUKAEMIA
     Dosage: 163 MG, ONCE A DAY, INTRAVENOUS
     Route: 042
     Dates: start: 20031210, end: 20031217
  3. GRANISETRON (GRANISETRON) [Concomitant]
  4. AMLODIPINA (AMLODIPINE) [Concomitant]
  5. ACID-TRANEXAMICO (TRANEXAMIC ACID) [Concomitant]
  6. ALLOPURINOL [Concomitant]

REACTIONS (17)
  - ACCIDENT [None]
  - ANTI-PLATELET ANTIBODY POSITIVE [None]
  - ASPERGILLOSIS [None]
  - BONE MARROW DEPRESSION [None]
  - CEREBRAL HAEMORRHAGE [None]
  - CHOLELITHIASIS [None]
  - COMA [None]
  - CONDITION AGGRAVATED [None]
  - DIZZINESS [None]
  - GENERAL PHYSICAL HEALTH DETERIORATION [None]
  - HEAD INJURY [None]
  - HYPERTENSION [None]
  - OEDEMA [None]
  - PYREXIA [None]
  - SKIN INFLAMMATION [None]
  - THROMBOCYTOPENIA [None]
  - VASCULAR INJURY [None]
